FAERS Safety Report 12668625 (Version 2)
Quarter: 2016Q3

REPORT INFORMATION
  Report Type: Spontaneous
  Country: IT (occurrence: IT)
  Receive Date: 20160819
  Receipt Date: 20160902
  Transmission Date: 20161109
  Serious: Yes (Hospitalization)
  Sender: FDA-Public Use
  Company Number: IT-TEVA-684803ACC

PATIENT
  Age: 60 Year
  Sex: Male

DRUGS (1)
  1. FUROSEMIDE TEVA - 500 MG COMPRESSE - TEVA ITALIA S.R.L. [Suspect]
     Active Substance: FUROSEMIDE
     Indication: CARDIAC FAILURE
     Dosage: 125 MILLIGRAM DAILY;
     Route: 048
     Dates: start: 20160707, end: 20160707

REACTIONS (2)
  - Urine output decreased [Recovered/Resolved]
  - Cardiac failure [Recovered/Resolved]

NARRATIVE: CASE EVENT DATE: 20160712
